FAERS Safety Report 24087963 (Version 1)
Quarter: 2024Q3

REPORT INFORMATION
  Report Type: Spontaneous
  Country: US (occurrence: US)
  Receive Date: 20240715
  Receipt Date: 20240715
  Transmission Date: 20241017
  Serious: Yes (Other)
  Sender: BOEHRINGER INGELHEIM
  Company Number: US-BoehringerIngelheim-2024-BI-038596

PATIENT
  Age: 67 Year
  Sex: Male

DRUGS (5)
  1. JARDIANCE [Suspect]
     Active Substance: EMPAGLIFLOZIN
     Indication: Type 2 diabetes mellitus
     Dates: start: 20160720
  2. JARDIANCE [Suspect]
     Active Substance: EMPAGLIFLOZIN
     Dates: end: 201902
  3. JANUMET [Concomitant]
     Active Substance: METFORMIN HYDROCHLORIDE\SITAGLIPTIN PHOSPHATE
     Indication: Type 2 diabetes mellitus
  4. LISINOPRIL [Concomitant]
     Active Substance: LISINOPRIL
     Indication: Hypertension
  5. INSULIN NOS [Concomitant]
     Active Substance: INSULIN NOS
     Indication: Hypertension

REACTIONS (3)
  - Renal transplant [Unknown]
  - Coronary artery bypass [Unknown]
  - Human epidermal growth factor receptor decreased [Unknown]

NARRATIVE: CASE EVENT DATE: 20190201
